FAERS Safety Report 5266175-X (Version None)
Quarter: 2007Q1

REPORT INFORMATION
  Report Type: 
  Country: None (occurrence: None)
  Receive Date: 20070315
  Receipt Date: 20070307
  Transmission Date: 20070707
  Serious: Yes (Hospitalization)
  Sender: FDA-Public Use
  Company Number: ES-JNJFOC-20070301826

PATIENT
  Age: 84 Year
  Sex: Male

DRUGS (1)
  1. TAVANIC [Suspect]
     Indication: PNEUMONIA
     Route: 048

REACTIONS (3)
  - GLOSSITIS [None]
  - PRURITUS [None]
  - RASH ERYTHEMATOUS [None]
